FAERS Safety Report 6149792-4 (Version None)
Quarter: 2009Q2

REPORT INFORMATION
  Report Type: 
  Country: None (occurrence: None)
  Receive Date: 20090407
  Receipt Date: 20090407
  Transmission Date: 20091009
  Serious: Yes (Hospitalization)
  Sender: FDA-Public Use
  Company Number: None

PATIENT
  Age: 45 Year
  Sex: Female
  Weight: 63.9572 kg

DRUGS (2)
  1. SPECTRACEF [Suspect]
     Indication: SINUSITIS
     Dosage: ONE TABLET TWICE A DAY PO
     Route: 048
     Dates: start: 20090325, end: 20090329
  2. XYZAL [Suspect]
     Dosage: ONE TABLET ONE AT NIGHT PO
     Route: 048
     Dates: start: 20090328, end: 20090329

REACTIONS (1)
  - COLITIS [None]
